FAERS Safety Report 5709659-X (Version None)
Quarter: 2008Q2

REPORT INFORMATION
  Report Type: 
  Country: None (occurrence: None)
  Receive Date: 20080418
  Receipt Date: 20080416
  Transmission Date: 20081010
  Serious: Yes (Other)
  Sender: FDA-Public Use
  Company Number: B0517253A

PATIENT
  Age: 39 Year
  Sex: Female

DRUGS (1)
  1. REQUIP [Suspect]

REACTIONS (2)
  - PSYCHOTIC DISORDER [None]
  - THERAPEUTIC RESPONSE INCREASED [None]
